FAERS Safety Report 4576919-8 (Version None)
Quarter: 2005Q1

REPORT INFORMATION
  Report Type: 
  Country: None (occurrence: None)
  Receive Date: 20050208
  Receipt Date: 20050201
  Transmission Date: 20050727
  Serious: No
  Sender: FDA-Public Use
  Company Number: 2005UW01742

PATIENT
  Age: 79 Year
  Sex: Female
  Weight: 63.502 kg

DRUGS (13)
  1. NEXIUM [Suspect]
     Indication: GASTROOESOPHAGEAL REFLUX DISEASE
     Dosage: 40 MG QD PO
     Route: 048
  2. NEXIUM [Suspect]
     Indication: GASTROOESOPHAGEAL REFLUX DISEASE
     Dosage: 20 MG QD PO
     Route: 048
  3. ATENOLOL [Concomitant]
  4. ZESTRIL [Concomitant]
  5. NORVASC [Concomitant]
  6. ASPIRIN [Concomitant]
  7. LEVOXYL [Concomitant]
  8. CALCIUM GLUCONATE [Concomitant]
  9. Z-BEC [Concomitant]
  10. COLACE [Concomitant]
  11. VIVELLE [Concomitant]
  12. LEXAPRO [Concomitant]
  13. XANAX [Concomitant]

REACTIONS (1)
  - CONVULSION [None]
